FAERS Safety Report 14894938 (Version 13)
Quarter: 2020Q1

REPORT INFORMATION
  Report Type: Spontaneous
  Country: FR (occurrence: FR)
  Receive Date: 20180515
  Receipt Date: 20200212
  Transmission Date: 20200409
  Serious: Yes (Death, Life-Threatening, Hospitalization, Other)
  Sender: FDA-Public Use
  Company Number: FR-AUROBINDO-AUR-APL-2018-024276

PATIENT
  Age: 80 Year
  Sex: Female
  Weight: 50 kg

DRUGS (31)
  1. PREDNISONE ARROW TABLET [Suspect]
     Active Substance: PREDNISONE
     Indication: DERMATOMYOSITIS
     Dosage: 45 MILLIGRAM ,QD ,1 DAY
     Route: 040
     Dates: start: 20170911, end: 20170911
  2. CORDARONE [Suspect]
     Active Substance: AMIODARONE HYDROCHLORIDE
     Dosage: 200 MILLIGRAM, TWO TIMES A DAY
     Route: 048
     Dates: start: 20170911, end: 20170911
  3. METHOTREXATE. [Concomitant]
     Active Substance: METHOTREXATE
     Indication: NEOPLASM
     Dosage: 0.3 MILLIGRAM/KILOGRAM, EVERY WEEK
     Route: 065
     Dates: start: 20170801
  4. CORDARONE [Suspect]
     Active Substance: AMIODARONE HYDROCHLORIDE
     Dosage: 1 DF QD
     Route: 040
     Dates: start: 20170911, end: 20170911
  5. DIGOXINE NATIVELLE [Suspect]
     Active Substance: DIGOXIN
     Indication: ARRHYTHMIA
  6. LEVOTHYROX [Suspect]
     Active Substance: LEVOTHYROXINE
     Dosage: 1 DOSAGE FORM, ONCE A DAY
     Route: 048
  7. ELIQUIS [Suspect]
     Active Substance: APIXABAN
     Dosage: 1 DOSAGE FORM, ONCE A DAY
     Route: 040
     Dates: start: 20170911, end: 20170911
  8. PARACETAMOL CAPSULE HARD 500MG [Suspect]
     Active Substance: ACETAMINOPHEN
     Dosage: 500 MILLIGRAM, TWO TIMES A DAY
     Route: 040
     Dates: start: 20170911, end: 20170911
  9. LASIX [Suspect]
     Active Substance: FUROSEMIDE
     Dosage: 20 MILLIGRAM, ONCE A DAY
     Route: 042
     Dates: start: 20170911, end: 20170911
  10. PARACETAMOL CAPSULE HARD 500MG [Suspect]
     Active Substance: ACETAMINOPHEN
     Dosage: 500 MILLIGRAM, TWO TIMES A DAY
     Route: 040
     Dates: start: 20170911, end: 20170911
  11. LEVOTHYROX [Suspect]
     Active Substance: LEVOTHYROXINE
     Indication: HYPOTHYROIDISM
     Dosage: 175 MICROGRAM, ONCE A DAY
     Route: 040
     Dates: start: 20170911, end: 20170911
  12. CALCIUM CARBONATE+ COLECALCIFEROL [Suspect]
     Active Substance: CALCIUM CARBONATE\CHOLECALCIFEROL
     Indication: OSTEOPOROSIS PROPHYLAXIS
     Dosage: 1 DOSAGE FORM, ONCE A DAY
     Route: 040
     Dates: start: 20170911, end: 20170911
  13. METHOTREXATE. [Concomitant]
     Active Substance: METHOTREXATE
     Dosage: UNK
     Route: 016
     Dates: start: 20170911
  14. LASIX [Suspect]
     Active Substance: FUROSEMIDE
     Dosage: 20 MILLIGRAM, ONCE A DAY
     Route: 065
  15. LASIX [Suspect]
     Active Substance: FUROSEMIDE
     Dosage: 20 MILLIGRAM, ONCE A DAY
     Route: 041
     Dates: start: 20170911, end: 20170911
  16. CORDARONE [Suspect]
     Active Substance: AMIODARONE HYDROCHLORIDE
     Indication: ARRHYTHMIA
     Dosage: 200 MILLIGRAM, ONCE A DAY,200 MG, BID
     Route: 048
     Dates: start: 20170911, end: 20170911
  17. CORDARONE [Suspect]
     Active Substance: AMIODARONE HYDROCHLORIDE
     Dosage: 1 DOSAGE FORM, ONCE A DAY
     Route: 048
  18. CORDARONE [Suspect]
     Active Substance: AMIODARONE HYDROCHLORIDE
     Dosage: UNK
     Route: 065
  19. DIGOXINE NATIVELLE [Suspect]
     Active Substance: DIGOXIN
     Indication: ARRHYTHMIA
     Dosage: 1 DOSAGE FORM, ONCE A DAY
     Route: 040
     Dates: start: 20170911, end: 20170911
  20. ARIPIPRAZOLE. [Concomitant]
     Active Substance: ARIPIPRAZOLE
     Indication: PRODUCT USED FOR UNKNOWN INDICATION
     Dosage: UNK
     Route: 065
  21. PREDNISONE ARROW TABLET [Suspect]
     Active Substance: PREDNISONE
     Dosage: 1 DOSAGE FORM, ONCE A DAY
     Route: 048
  22. PREDNISONE ARROW TABLET [Suspect]
     Active Substance: PREDNISONE
     Dosage: 45 MILLIGRAM, ONCE A DAY
     Route: 042
     Dates: start: 20170911, end: 20170911
  23. LASIX [Suspect]
     Active Substance: FUROSEMIDE
     Indication: CARDIAC FAILURE
     Dosage: 20 MILLIGRAM, ONCE A DAY
     Route: 048
  24. ELIQUIS [Suspect]
     Active Substance: APIXABAN
     Indication: THROMBOSIS PROPHYLAXIS
     Dosage: 1 DOSAGE FORM, ONCE A DAY
     Route: 048
     Dates: start: 20170911, end: 20170911
  25. PARACETAMOL CAPSULE HARD 500MG [Suspect]
     Active Substance: ACETAMINOPHEN
     Indication: ANALGESIC THERAPY
     Dosage: 2 DOSAGE FORM, ONCE A DAY
     Route: 040
     Dates: start: 20170911, end: 20170911
  26. PARACETAMOL CAPSULE HARD 500MG [Suspect]
     Active Substance: ACETAMINOPHEN
     Indication: PAIN
     Dosage: 1 DOSAGE FORM, ONCE A DAY
     Route: 040
     Dates: start: 20170911, end: 20170911
  27. PARACETAMOL CAPSULE HARD 500MG [Suspect]
     Active Substance: ACETAMINOPHEN
     Dosage: 500 MILLIGRAM, ONCE A DAY
     Route: 048
  28. CALCIDOSE [CALCIUM CARBONATE;COLECALCIFEROL] [Suspect]
     Active Substance: CALCIUM CARBONATE\CHOLECALCIFEROL
     Indication: OSTEOPOROSIS PROPHYLAXIS
     Dosage: 1 DOSAGE FORM, ONCE A DAY, 1 SACHET
     Route: 040
     Dates: start: 20170911, end: 20170911
  29. CALCIDOSE [CALCIUM CARBONATE;COLECALCIFEROL] [Suspect]
     Active Substance: CALCIUM CARBONATE\CHOLECALCIFEROL
     Dosage: 1 DOSAGE FORM, ONCE A DAY
     Route: 048
  30. CORDARONE [Suspect]
     Active Substance: AMIODARONE HYDROCHLORIDE
     Dosage: 1 DOSAGE FORM, ONCE A DAY
     Route: 048
     Dates: start: 20170911, end: 20170911
  31. ELIQUIS [Suspect]
     Active Substance: APIXABAN
     Indication: THROMBOSIS PROPHYLAXIS
     Dosage: 2.5 MILLIGRAM, ONCE A DAY
     Route: 040
     Dates: start: 20170911, end: 20170911

REACTIONS (5)
  - Medication error [Fatal]
  - Cardiac arrest [Fatal]
  - Cardio-respiratory arrest [Fatal]
  - Incorrect route of product administration [Fatal]
  - Off label use [Fatal]

NARRATIVE: CASE EVENT DATE: 20170911
